FAERS Safety Report 14450803 (Version 1)
Quarter: 2018Q1

REPORT INFORMATION
  Report Type: Spontaneous
  Country: US (occurrence: US)
  Receive Date: 20180126
  Receipt Date: 20180126
  Transmission Date: 20180509
  Serious: Yes (Other)
  Sender: FDA-Public Use
  Company Number: None

PATIENT
  Age: 52 Year
  Sex: Male
  Weight: 74.25 kg

DRUGS (4)
  1. LISINOPRIL. [Concomitant]
     Active Substance: LISINOPRIL
  2. NORCO [Concomitant]
     Active Substance: ACETAMINOPHEN\HYDROCODONE BITARTRATE
  3. TIZADINE [Concomitant]
     Active Substance: TIZANIDINE HYDROCHLORIDE
  4. FENTANYL TRANSDERMAL SYSTEM [Suspect]
     Active Substance: FENTANYL
     Indication: PAIN MANAGEMENT
     Dosage: ?          QUANTITY:1 PATCH(ES);OTHER FREQUENCY:1 EVERY 3 DAYS;?
     Route: 062
     Dates: start: 20180115

REACTIONS (2)
  - Drug effect decreased [None]
  - Withdrawal syndrome [None]

NARRATIVE: CASE EVENT DATE: 20180120
